FAERS Safety Report 17111155 (Version 1)
Quarter: 2019Q4

REPORT INFORMATION
  Report Type: Spontaneous
  Country: ZA (occurrence: ZA)
  Receive Date: 20191204
  Receipt Date: 20191204
  Transmission Date: 20200122
  Serious: Yes (Hospitalization)
  Sender: FDA-Public Use
  Company Number: ZA-ABBVIE-19K-143-3179452-00

PATIENT
  Sex: Male

DRUGS (1)
  1. HUMIRA [Suspect]
     Active Substance: ADALIMUMAB
     Indication: IMMUNE SYSTEM DISORDER
     Route: 058

REACTIONS (2)
  - Drug level decreased [Unknown]
  - Immune system disorder [Unknown]

NARRATIVE: CASE EVENT DATE: 201911
